FAERS Safety Report 9619838 (Version 2)
Quarter: 2013Q4

REPORT INFORMATION
  Report Type: Report from Study
  Country: JP (occurrence: JP)
  Receive Date: 20131014
  Receipt Date: 20131014
  Transmission Date: 20140711
  Serious: Yes (Death, Other)
  Sender: FDA-Public Use
  Company Number: JP-SA-THYM-1003580

PATIENT
  Age: 35 Year
  Sex: Male
  Weight: 52 kg

DRUGS (20)
  1. THYMOGLOBULIN [Suspect]
     Indication: ACUTE GRAFT VERSUS HOST DISEASE
     Dosage: 60 MG, QD (OVER 10 HOURS)
     Route: 065
     Dates: start: 20110212, end: 20110212
  2. THYMOGLOBULIN [Suspect]
     Indication: ACUTE GRAFT VERSUS HOST DISEASE
     Dosage: 60 MG, QD (OVER 10 HOURS)
     Route: 065
     Dates: start: 20110220, end: 20110220
  3. THYMOGLOBULIN [Suspect]
     Indication: ACUTE GRAFT VERSUS HOST DISEASE
     Dosage: 125 MG, QD (OVER 10 HOURS)
     Route: 065
     Dates: start: 20110228, end: 20110228
  4. THYMOGLOBULIN [Suspect]
     Indication: ACUTE GRAFT VERSUS HOST DISEASE
     Dosage: 125 MG, QD (OVER 10 HOURS)
     Route: 065
     Dates: start: 20110314, end: 20110314
  5. THYMOGLOBULIN [Suspect]
     Indication: ACUTE GRAFT VERSUS HOST DISEASE
     Dosage: 125 MG, QD (OVER 10 HOURS)
     Route: 065
     Dates: start: 20110413, end: 20110413
  6. FLUDARA [Suspect]
     Indication: BONE MARROW CONDITIONING REGIMEN
     Dosage: UNK
     Route: 065
     Dates: start: 20101202, end: 20101206
  7. TACROLIMUS [Suspect]
     Indication: PRODUCT USED FOR UNKNOWN INDICATION
     Dosage: UNK
     Route: 065
     Dates: start: 20101207
  8. BUSULFAN [Concomitant]
     Indication: BONE MARROW CONDITIONING REGIMEN
     Dosage: UNK
     Dates: start: 20101202, end: 20101206
  9. URSODEOXYCHOLIC ACID [Concomitant]
     Dosage: UNK
  10. CARBAZOCHROME SODIUM SULFONATE [Concomitant]
     Dosage: UNK
  11. METHOTREXATE [Concomitant]
     Indication: PROPHYLAXIS AGAINST GRAFT VERSUS HOST DISEASE
     Dosage: UNK
     Dates: start: 20101209, end: 20101214
  12. GABEXATE MESILATE [Concomitant]
     Dosage: UNK
  13. GANCICLOVIR [Concomitant]
     Dosage: UNK
  14. IMMUNOGLOBULIN HUMAN NORMAL [Concomitant]
     Dosage: UNK
  15. AMLODIPINE BESILATE [Concomitant]
     Dosage: UNK
  16. NICARDIPINE HYDROCHLORIDE [Concomitant]
     Dosage: UNK
  17. MICAFUNGIN SODIUM [Concomitant]
     Dosage: UNK
  18. MEROPENEM [Concomitant]
     Dosage: UNK
  19. VANCOMYCIN HYDROCHLORIDE [Concomitant]
     Dosage: UNK
  20. RANITIDINE [Concomitant]
     Dosage: UNK

REACTIONS (5)
  - Thrombotic microangiopathy [Fatal]
  - Non-Hodgkin^s lymphoma [Unknown]
  - Acute graft versus host disease in skin [Unknown]
  - Acute graft versus host disease in liver [Unknown]
  - Acute graft versus host disease in intestine [Unknown]
